FAERS Safety Report 15831020 (Version 1)
Quarter: 2019Q1

REPORT INFORMATION
  Report Type: Spontaneous
  Country: US (occurrence: US)
  Receive Date: 20190116
  Receipt Date: 20190116
  Transmission Date: 20190417
  Serious: Yes (Other)
  Sender: FDA-Public Use
  Company Number: US-BEH-2019098327

PATIENT
  Sex: Male

DRUGS (4)
  1. HIZENTRA [Suspect]
     Active Substance: HUMAN IMMUNOGLOBULIN G
     Dosage: 4 X 1G VIALS
     Route: 058
  2. HIZENTRA [Suspect]
     Active Substance: HUMAN IMMUNOGLOBULIN G
     Dosage: 10G VIAL
     Route: 058
  3. HIZENTRA [Suspect]
     Active Substance: HUMAN IMMUNOGLOBULIN G
     Indication: HYPOGAMMAGLOBULINAEMIA
     Dosage: 17 G, QW
     Route: 058
     Dates: start: 201603, end: 20190101
  4. HIZENTRA [Suspect]
     Active Substance: HUMAN IMMUNOGLOBULIN G
     Dosage: 4G VIAL
     Route: 058

REACTIONS (10)
  - Skin discolouration [Unknown]
  - Carpal tunnel syndrome [Unknown]
  - Hypoaesthesia [Unknown]
  - Muscular weakness [Unknown]
  - Nerve conduction studies abnormal [Unknown]
  - Peripheral coldness [Unknown]
  - Pain in extremity [Unknown]
  - Loss of personal independence in daily activities [Unknown]
  - Neuropathy peripheral [Unknown]
  - Paraesthesia [Unknown]

NARRATIVE: CASE EVENT DATE: 2018
